FAERS Safety Report 9296400 (Version 1)
Quarter: 2013Q2

REPORT INFORMATION
  Report Type: Spontaneous
  Country: GB (occurrence: GB)
  Receive Date: 20130517
  Receipt Date: 20130517
  Transmission Date: 20140414
  Serious: Yes (Hospitalization)
  Sender: FDA-Public Use
  Company Number: GB-ASTRAZENECA-2013SE32824

PATIENT
  Age: 77 Year
  Sex: Male

DRUGS (7)
  1. ATENOLOL [Suspect]
     Indication: HYPERTENSION
     Route: 065
     Dates: start: 19990801, end: 20020324
  2. AMIODARONE [Concomitant]
  3. AMLODIPINE [Concomitant]
  4. ASPIRIN [Concomitant]
  5. GTN [Concomitant]
  6. IMDUR [Concomitant]
     Route: 048
  7. NIZATIDINE [Concomitant]

REACTIONS (2)
  - Bradycardia [Unknown]
  - Circulatory collapse [Unknown]
